FAERS Safety Report 9792245 (Version 7)
Quarter: 2014Q4

REPORT INFORMATION
  Report Type: Spontaneous
  Country: US (occurrence: US)
  Receive Date: 20140102
  Receipt Date: 20141201
  Transmission Date: 20150529
  Serious: Yes (Hospitalization, Other)
  Sender: FDA-Public Use
  Company Number: US-009507513-1312USA011688

PATIENT
  Sex: Female
  Weight: 65.76 kg

DRUGS (6)
  1. FOSAMAX [Suspect]
     Active Substance: ALENDRONATE SODIUM
     Dosage: 70 MG, QW
     Route: 048
     Dates: end: 2003
  2. FOSAMAX [Suspect]
     Active Substance: ALENDRONATE SODIUM
     Dosage: 70 MG, QW
     Route: 048
     Dates: start: 200502
  3. ALENDRONATE SODIUM. [Suspect]
     Active Substance: ALENDRONATE SODIUM
     Indication: OSTEOPENIA
  4. FOSAMAX [Suspect]
     Active Substance: ALENDRONATE SODIUM
     Indication: OSTEOPENIA
     Dosage: UNK
     Route: 048
     Dates: start: 1999
  5. FOSAMAX PLUS D [Suspect]
     Active Substance: ALENDRONATE SODIUM\CHOLECALCIFEROL
     Indication: OSTEOPENIA
     Dosage: 70/2800, QW
     Route: 048
     Dates: start: 2005, end: 2009
  6. ALENDRONATE SODIUM. [Suspect]
     Active Substance: ALENDRONATE SODIUM
     Indication: OSTEOPOROSIS
     Dosage: 70 MG, QW
     Route: 048
     Dates: end: 2009

REACTIONS (50)
  - Intramedullary rod insertion [Recovered/Resolved]
  - Femur fracture [Unknown]
  - Femur fracture [Recovered/Resolved]
  - Vitamin D deficiency [Unknown]
  - Gout [Unknown]
  - Rib fracture [Unknown]
  - Bursitis [Unknown]
  - Pharyngeal inflammation [Unknown]
  - Arthralgia [Unknown]
  - Stress fracture [Unknown]
  - Dyspnoea [Unknown]
  - Agitation [Unknown]
  - Anxiety [Unknown]
  - Anaemia [Unknown]
  - Headache [Unknown]
  - Low turnover osteopathy [Unknown]
  - Varicose vein [Unknown]
  - Balance disorder [Unknown]
  - Muscular weakness [Unknown]
  - Feeling abnormal [Unknown]
  - Myalgia [Unknown]
  - Pain in extremity [Unknown]
  - Intramedullary rod insertion [Unknown]
  - Femur fracture [Unknown]
  - Osteoarthritis [Unknown]
  - Upper limb fracture [Unknown]
  - Foot fracture [Unknown]
  - Anaemia [Unknown]
  - Joint swelling [Unknown]
  - Foot fracture [Unknown]
  - Depression [Unknown]
  - Arthritis [Unknown]
  - Hypertension [Unknown]
  - Back disorder [Unknown]
  - Seborrhoeic keratosis [Unknown]
  - Adverse event [Unknown]
  - Adverse event [Unknown]
  - Hypercholesterolaemia [Unknown]
  - Foot fracture [Unknown]
  - Weight decreased [Unknown]
  - Adverse event [Unknown]
  - Gastrooesophageal reflux disease [Unknown]
  - Chest discomfort [Unknown]
  - Sleep disorder [Unknown]
  - Dysplastic naevus [Unknown]
  - Adverse event [Unknown]
  - Gallbladder disorder [Unknown]
  - Arthralgia [Unknown]
  - Blood pressure increased [Unknown]
  - Dizziness [Unknown]

NARRATIVE: CASE EVENT DATE: 1999
